FAERS Safety Report 12513189 (Version 1)
Quarter: 2016Q2

REPORT INFORMATION
  Report Type: Spontaneous
  Country: US (occurrence: None)
  Receive Date: 20160629
  Receipt Date: 20160629
  Transmission Date: 20160815
  Serious: Yes (Other)
  Sender: FDA-Public Use
  Company Number: None

PATIENT
  Age: 26 Year
  Sex: Female
  Weight: 59.88 kg

DRUGS (7)
  1. RISPERDAL [Concomitant]
     Active Substance: RISPERIDONE
  2. PROZAAK [Concomitant]
  3. VITAMIN D [Concomitant]
     Active Substance: CHOLECALCIFEROL
  4. TEMAZEPAM, 30 MG [Suspect]
     Active Substance: TEMAZEPAM
     Indication: SLEEP DISORDER
     Dosage: TEMAZEPAM?7 CAPSULE(S) ONCE A DAY TAKEN BY MOUTH
     Route: 048
     Dates: start: 20160618, end: 20160627
  5. PROBIOTIC [Concomitant]
     Active Substance: PROBIOTICS NOS
  6. VITAMIN C [Concomitant]
     Active Substance: ASCORBIC ACID
  7. KLONOPIN [Concomitant]
     Active Substance: CLONAZEPAM

REACTIONS (16)
  - Hostility [None]
  - Somnolence [None]
  - Headache [None]
  - Hallucination [None]
  - Suicidal ideation [None]
  - Nausea [None]
  - Depressed mood [None]
  - Confusional state [None]
  - Memory impairment [None]
  - Self-injurious ideation [None]
  - Agitation [None]
  - Anxiety [None]
  - Hangover [None]
  - Fatigue [None]
  - Nightmare [None]
  - Dizziness [None]

NARRATIVE: CASE EVENT DATE: 20160625
